FAERS Safety Report 20637772 (Version 21)
Quarter: 2023Q1

REPORT INFORMATION
  Report Type: Report from Study
  Country: US (occurrence: None)
  Receive Date: 20220325
  Receipt Date: 20230210
  Transmission Date: 20230418
  Serious: Yes (Death, Life-Threatening, Hospitalization)
  Sender: FDA-Public Use
  Company Number: US-Eisai Medical Research-EC-2022-111546

PATIENT
  Age: 72 Year
  Sex: Female
  Weight: 81.5 kg

DRUGS (9)
  1. LENVATINIB [Suspect]
     Active Substance: LENVATINIB
     Indication: Hepatocellular carcinoma
     Route: 048
     Dates: start: 20220222, end: 20220222
  2. LENVATINIB [Suspect]
     Active Substance: LENVATINIB
     Route: 048
     Dates: start: 20220228, end: 20220308
  3. PEMBROLIZUMAB [Suspect]
     Active Substance: PEMBROLIZUMAB
     Indication: Hepatocellular carcinoma
     Dosage: MK-1308A 425 MG CONTAINS QUAVONLIMAB (MK-1308) 25 MG PLUS PEMBROLIZUMAB (MK-3475) 400 MG
     Route: 042
     Dates: start: 20220222, end: 20220222
  4. AMBIEN [Concomitant]
     Active Substance: ZOLPIDEM TARTRATE
     Dates: start: 20220228, end: 20220321
  5. OXYCODONE [Concomitant]
     Active Substance: OXYCODONE
     Dates: start: 20220207, end: 20220321
  6. SENOKOT [Concomitant]
     Active Substance: SENNOSIDES
     Dates: start: 20220228, end: 20220321
  7. PROCHLORPERAZINE [Concomitant]
     Active Substance: PROCHLORPERAZINE
     Dates: start: 20220228, end: 20220321
  8. EFFEXOR [Concomitant]
     Active Substance: VENLAFAXINE HYDROCHLORIDE
     Dates: start: 20220228, end: 20220314
  9. QUAVONLIMAB [Suspect]
     Active Substance: QUAVONLIMAB

REACTIONS (1)
  - Acute respiratory failure [Fatal]

NARRATIVE: CASE EVENT DATE: 20220321
